FAERS Safety Report 17755609 (Version 3)
Quarter: 2020Q2

REPORT INFORMATION
  Report Type: Spontaneous
  Country: US (occurrence: US)
  Receive Date: 20200507
  Receipt Date: 20200522
  Transmission Date: 20200714
  Serious: No
  Sender: FDA-Public Use
  Company Number: US-PFIZER INC-2020181831

PATIENT
  Age: 59 Year
  Sex: Female
  Weight: 45.35 kg

DRUGS (2)
  1. GABAPENTIN. [Suspect]
     Active Substance: GABAPENTIN
     Indication: LIMB DISCOMFORT
     Dosage: 300MG TWICE A DAY, 600MG AT NIGHT
     Dates: start: 202002
  2. GABAPENTIN. [Suspect]
     Active Substance: GABAPENTIN
     Indication: MUSCULAR WEAKNESS

REACTIONS (4)
  - Product use in unapproved indication [Unknown]
  - Bursitis [Unknown]
  - Off label use [Unknown]
  - Drug effective for unapproved indication [Unknown]
